FAERS Safety Report 5054905-1 (Version None)
Quarter: 2006Q3

REPORT INFORMATION
  Report Type: 
  Country: None (occurrence: None)
  Receive Date: 20060717
  Receipt Date: 20060705
  Transmission Date: 20061208
  Serious: Yes (Other)
  Sender: FDA-Public Use
  Company Number: 2006044890

PATIENT
  Age: 75 Year
  Sex: Male

DRUGS (1)
  1. BEXTRA [Suspect]
     Dates: start: 20040601

REACTIONS (1)
  - CEREBROVASCULAR ACCIDENT [None]
